FAERS Safety Report 10194136 (Version 1)
Quarter: 2014Q2

REPORT INFORMATION
  Report Type: Spontaneous
  Country: US (occurrence: US)
  Receive Date: 20140524
  Receipt Date: 20140524
  Transmission Date: 20141212
  Serious: No
  Sender: FDA-Public Use
  Company Number: US-SANOFI-AVENTIS-2013SA066983

PATIENT
  Age: 64 Year
  Sex: Female

DRUGS (3)
  1. LANTUS [Suspect]
  2. JANUVIA [Suspect]
  3. METFORMIN [Suspect]

REACTIONS (5)
  - Fungal infection [Unknown]
  - Haemorrhage [Unknown]
  - Arthritis [Unknown]
  - Sleep disorder [Unknown]
  - Blood glucose increased [Unknown]
